FAERS Safety Report 4303719-6 (Version None)
Quarter: 2004Q1

REPORT INFORMATION
  Report Type: 
  Country: None (occurrence: None)
  Receive Date: 20040225
  Receipt Date: 20040216
  Transmission Date: 20041129
  Serious: Yes (Life-Threatening, Hospitalization)
  Sender: FDA-Public Use
  Company Number: 200412143GDDC

PATIENT
  Age: 19 Year
  Sex: Female
  Weight: 76.2 kg

DRUGS (11)
  1. THIOPENTONE [Suspect]
     Dosage: DOSE: UNK
  2. FLAGYL [Suspect]
     Dosage: DOSE: UNK
  3. SUXAMETHONIUM [Suspect]
     Dosage: DOSE: UNK
  4. FENTANYL [Suspect]
     Dosage: DOSE: UNK
  5. MORPHINE [Suspect]
     Dosage: DOSE: UNK
  6. VERAPAMIL [Suspect]
     Dosage: DOSE: UNK
  7. BUPIVACAINE [Suspect]
     Indication: ANAESTHESIA
     Dosage: DOSE: 0.5 %
  8. CEFUROXIME [Suspect]
     Dosage: DOSE: UNK
  9. EPHEDRINE [Suspect]
     Dosage: DOSE: UNK
  10. ONDANSETRON [Suspect]
     Dosage: DOSE: UNK
  11. IODINE [Suspect]
     Dosage: DOSE: UNK

REACTIONS (6)
  - ERYTHEMA [None]
  - HYPOTENSION [None]
  - POST PROCEDURAL COMPLICATION [None]
  - PRURITUS [None]
  - SWELLING FACE [None]
  - WHEEZING [None]
